FAERS Safety Report 18572195 (Version 1)
Quarter: 2020Q4

REPORT INFORMATION
  Report Type: Report from Study
  Country: BR (occurrence: BR)
  Receive Date: 20201202
  Receipt Date: 20201202
  Transmission Date: 20210114
  Serious: Yes (Other)
  Sender: FDA-Public Use
  Company Number: BR-TAKEDA-BR202027185

PATIENT

DRUGS (2)
  1. HEMO-8R [Suspect]
     Active Substance: ANTIHEMOPHILIC FACTOR, HUMAN RECOMBINANT
     Dosage: 1000 INTERNATIONAL UNIT
     Route: 042
     Dates: start: 20150506
  2. HEMO-8R [Suspect]
     Active Substance: ANTIHEMOPHILIC FACTOR, HUMAN RECOMBINANT
     Indication: FACTOR VIII DEFICIENCY
     Dosage: 750 INTERNATIONAL UNIT, QOD
     Route: 042
     Dates: start: 20150506

REACTIONS (6)
  - Internal haemorrhage [Recovering/Resolving]
  - Drug ineffective [Recovering/Resolving]
  - Mouth haemorrhage [Recovering/Resolving]
  - Weight abnormal [Unknown]
  - Haemorrhage [Not Recovered/Not Resolved]
  - Anti factor VIII antibody test [Recovering/Resolving]
